FAERS Safety Report 5085553-5 (Version None)
Quarter: 2006Q3

REPORT INFORMATION
  Report Type: 
  Country: None (occurrence: None)
  Receive Date: 20060816
  Receipt Date: 20060731
  Transmission Date: 20061208
  Serious: Yes (Hospitalization)
  Sender: FDA-Public Use
  Company Number: 228550

PATIENT
  Age: 56 Year
  Sex: Male

DRUGS (6)
  1. AVASTIN [Suspect]
     Indication: COLORECTAL CANCER
     Dosage: 710 MG, QD, INTRAVENOUS
     Route: 042
     Dates: start: 20060717
  2. CAPECITABINE (CAPECITABINE) [Suspect]
     Indication: COLORECTAL CANCER
     Dosage: 2000 MG, BID, ORAL
     Route: 048
     Dates: start: 20060717
  3. OXALIPLATIN (OXALIPLATIN) [Suspect]
     Indication: COLORECTAL CANCER
     Dosage: 280 MG, QD, INTRAVENOUS
     Route: 042
     Dates: start: 20060717
  4. METOCLOPRAMIDE (METOCLOPRAMIDE HYDROCHLORIDE) [Concomitant]
  5. DICLOFENAC SODIUM [Concomitant]
  6. ACETAMINOPHEN [Concomitant]

REACTIONS (2)
  - C-REACTIVE PROTEIN INCREASED [None]
  - PYREXIA [None]
